FAERS Safety Report 17239407 (Version 2)
Quarter: 2020Q3

REPORT INFORMATION
  Report Type: Report from Study
  Country: US (occurrence: US)
  Receive Date: 20200106
  Receipt Date: 20200707
  Transmission Date: 20201102
  Serious: Yes (Death)
  Sender: FDA-Public Use
  Company Number: US-PFIZER INC-2020002833

PATIENT
  Age: 9 Year

DRUGS (4)
  1. ALEMTUZUMAB [Suspect]
     Active Substance: ALEMTUZUMAB
     Indication: ALLOGENIC BONE MARROW TRANSPLANTATION THERAPY
     Dosage: 0.5 MG/KG, (MAX DOSE 15 MG), DAYS ?12 TO ?10
     Route: 042
  2. METHOTREXATE. [Concomitant]
     Active Substance: METHOTREXATE
     Indication: PROPHYLAXIS AGAINST GRAFT VERSUS HOST DISEASE
     Dosage: UNK
  3. BUSULFAN. [Suspect]
     Active Substance: BUSULFAN
     Indication: ALLOGENIC BONE MARROW TRANSPLANTATION THERAPY
     Dosage: 600 NG/ML (CSS), DAYS ?9 TO ?6
  4. FLUDARABINE PHOSPHATE. [Suspect]
     Active Substance: FLUDARABINE PHOSPHATE
     Indication: ALLOGENIC BONE MARROW TRANSPLANTATION THERAPY
     Dosage: 40 MG/M2, DAYS ?5 TO ?2

REACTIONS (2)
  - Respiratory failure [Fatal]
  - Transplant rejection [Fatal]
